FAERS Safety Report 12433292 (Version 2)
Quarter: 2016Q2

REPORT INFORMATION
  Report Type: Spontaneous
  Country: US (occurrence: US)
  Receive Date: 20160603
  Receipt Date: 20160615
  Transmission Date: 20160815
  Serious: Yes (Other)
  Sender: FDA-Public Use
  Company Number: US-TEVA-662814USA

PATIENT
  Age: 41 Year
  Sex: Female

DRUGS (1)
  1. ZECUITY [Suspect]
     Active Substance: SUMATRIPTAN SUCCINATE
     Indication: MIGRAINE
     Dosage: 6.5 MG OVER 4 HOURS
     Route: 062

REACTIONS (3)
  - Application site vesicles [Unknown]
  - Application site burn [Unknown]
  - Application site discolouration [Unknown]

NARRATIVE: CASE EVENT DATE: 20160518
